FAERS Safety Report 15880868 (Version 1)
Quarter: 2019Q1

REPORT INFORMATION
  Report Type: Spontaneous
  Country: NL (occurrence: NL)
  Receive Date: 20190128
  Receipt Date: 20190128
  Transmission Date: 20190417
  Serious: Yes (Other)
  Sender: FDA-Public Use
  Company Number: NL-MYLANLABS-2019M1006727

PATIENT
  Age: 59 Year
  Sex: Male
  Weight: 86 kg

DRUGS (1)
  1. SIMVASTATIN. [Suspect]
     Active Substance: SIMVASTATIN
     Indication: HYPERCHOLESTEROLAEMIA
     Dosage: 40 MILLIGRAM
     Route: 048
     Dates: start: 201712, end: 20180620

REACTIONS (1)
  - Muscle rupture [Recovering/Resolving]

NARRATIVE: CASE EVENT DATE: 20180528
